FAERS Safety Report 17781080 (Version 1)
Quarter: 2020Q2

REPORT INFORMATION
  Report Type: Spontaneous
  Country: DE (occurrence: DE)
  Receive Date: 20200514
  Receipt Date: 20200514
  Transmission Date: 20200714
  Serious: Yes (Hospitalization)
  Sender: FDA-Public Use
  Company Number: DE-TEVA-2020-DE-1234156

PATIENT
  Age: 14 Year
  Sex: Female
  Weight: 50 kg

DRUGS (1)
  1. ETHINYLESTRADIOL/LEVONORGESTREL [Suspect]
     Active Substance: ETHINYL ESTRADIOL\LEVONORGESTREL
     Indication: ORAL CONTRACEPTION
     Dosage: ETHINYLESTRADIOL 30 MICROG AND LEVONORGESTREL 150 MICROG, DOSAGE NOT STATED
     Route: 048

REACTIONS (2)
  - Cerebral venous sinus thrombosis [Recovering/Resolving]
  - Decreased appetite [Recovered/Resolved]
